FAERS Safety Report 24096182 (Version 1)
Quarter: 2024Q3

REPORT INFORMATION
  Report Type: Spontaneous
  Country: AT (occurrence: AT)
  Receive Date: 20240716
  Receipt Date: 20240716
  Transmission Date: 20241016
  Serious: Yes (Other)
  Sender: TEVA
  Company Number: None

PATIENT
  Age: 57 Year
  Sex: Female

DRUGS (2)
  1. PREGABALIN [Suspect]
     Active Substance: PREGABALIN
     Indication: Product used for unknown indication
     Dosage: 50MG
     Route: 048
     Dates: start: 20240606
  2. PREGABALIN [Suspect]
     Active Substance: PREGABALIN
     Indication: Product used for unknown indication
     Dosage: 2X150MG, PREGABALIN RATIOPHARM
     Route: 048
     Dates: start: 20240527, end: 20240605

REACTIONS (4)
  - Frequent bowel movements [Recovered/Resolved]
  - Abnormal behaviour [Recovered/Resolved]
  - Cognitive disorder [Recovered/Resolved]
  - Hallucination, visual [Recovered/Resolved]

NARRATIVE: CASE EVENT DATE: 20240529
